FAERS Safety Report 14267678 (Version 1)
Quarter: 2017Q4

REPORT INFORMATION
  Report Type: Report from Study
  Country: US (occurrence: US)
  Receive Date: 20171211
  Receipt Date: 20171211
  Transmission Date: 20180321
  Serious: No
  Sender: FDA-Public Use
  Company Number: PHEH2017US039472

PATIENT
  Sex: Male

DRUGS (2)
  1. ILARIS [Suspect]
     Active Substance: CANAKINUMAB
     Indication: PRODUCT USED FOR UNKNOWN INDICATION
     Dosage: 1 DF, Q4W
     Route: 065
     Dates: start: 20171025
  2. ILARIS [Suspect]
     Active Substance: CANAKINUMAB
     Dosage: 1 DF, Q4W
     Route: 065
     Dates: start: 20171130

REACTIONS (1)
  - Inappropriate schedule of drug administration [Unknown]
